FAERS Safety Report 19801360 (Version 1)
Quarter: 2021Q3

REPORT INFORMATION
  Report Type: Report from Study
  Country: US (occurrence: US)
  Receive Date: 20210907
  Receipt Date: 20210907
  Transmission Date: 20211014
  Serious: Yes (Other)
  Sender: FDA-Public Use
  Company Number: NVSC2021US197518

PATIENT
  Sex: Female

DRUGS (1)
  1. COSENTYX [Suspect]
     Active Substance: SECUKINUMAB
     Indication: PSORIATIC ARTHROPATHY
     Dosage: 150 MG, QMO
     Route: 058

REACTIONS (5)
  - Spinal disorder [Recovering/Resolving]
  - Arthralgia [Recovering/Resolving]
  - Intervertebral disc protrusion [Recovering/Resolving]
  - Osteoarthritis [Recovering/Resolving]
  - Spinal compression fracture [Recovering/Resolving]
